FAERS Safety Report 14688649 (Version 1)
Quarter: 2018Q1

REPORT INFORMATION
  Report Type: Spontaneous
  Country: BR (occurrence: BR)
  Receive Date: 20180328
  Receipt Date: 20180328
  Transmission Date: 20180509
  Serious: Yes (Hospitalization)
  Sender: FDA-Public Use
  Company Number: BR-PFIZER INC-2015134210

PATIENT
  Age: 54 Year
  Sex: Female

DRUGS (3)
  1. INDAPEN /00026701/ [Concomitant]
     Dosage: UNK
     Dates: start: 2001
  2. FRONTAL XR [Suspect]
     Active Substance: ALPRAZOLAM
     Indication: ANXIETY
     Dosage: 0.5 MG, 2X/DAY (MORNING AND NIGHT)
     Dates: start: 2001
  3. FRONTAL XR [Suspect]
     Active Substance: ALPRAZOLAM
     Indication: PANIC DISORDER
     Dosage: 0.5 MG, 2X/DAY (MORNING AND NIGHT)
     Dates: start: 2001

REACTIONS (9)
  - Nervousness [Unknown]
  - Somnolence [Unknown]
  - Blood creatinine abnormal [Recovered/Resolved]
  - Intentional product misuse [Unknown]
  - Seborrhoeic dermatitis [Unknown]
  - Sinus tachycardia [Recovered/Resolved]
  - Wound complication [Unknown]
  - Weight increased [Not Recovered/Not Resolved]
  - Spinal osteoarthritis [Not Recovered/Not Resolved]

NARRATIVE: CASE EVENT DATE: 2007
